FAERS Safety Report 8310336-X (Version None)
Quarter: 2012Q2

REPORT INFORMATION
  Report Type: 
  Country: None (occurrence: None)
  Receive Date: 20120425
  Receipt Date: 20120420
  Transmission Date: 20120825
  Serious: Yes (Life-Threatening, Hospitalization, Other)
  Sender: FDA-Public Use
  Company Number: PHHY2012FR033851

PATIENT
  Sex: Male

DRUGS (7)
  1. CLOZAPINE [Suspect]
     Indication: SCHIZOPHRENIA, PARANOID TYPE
     Dosage: 50 MG/DAY
     Route: 048
     Dates: end: 20120407
  2. CLOPIXOL [Suspect]
     Indication: SCHIZOPHRENIA, PARANOID TYPE
     Dosage: 3 DF PER DAY
     Route: 048
     Dates: end: 20120407
  3. XEROQUEL [Suspect]
     Indication: SCHIZOPHRENIA, PARANOID TYPE
     Dosage: 800 MG PER DAY
     Route: 048
     Dates: end: 20120407
  4. DEPAKOTE [Concomitant]
     Dosage: UNK UKN, UNK
  5. LORAZEPAM [Concomitant]
     Dosage: UNK UKN, UNK
  6. PANTOPRAZOLE [Concomitant]
     Dosage: UNK UKN, UNK
  7. LEPTICUR [Suspect]
     Indication: SCHIZOPHRENIA, PARANOID TYPE
     Dosage: 1 DF, TID
     Route: 048
     Dates: end: 20120407

REACTIONS (16)
  - SEPSIS [None]
  - COLITIS ISCHAEMIC [None]
  - MULTI-ORGAN FAILURE [None]
  - HAEMODYNAMIC INSTABILITY [None]
  - PYREXIA [None]
  - HYPERLACTACIDAEMIA [None]
  - AGITATION [None]
  - RENAL FAILURE [None]
  - PSYCHOTIC DISORDER [None]
  - GENERALISED ERYTHEMA [None]
  - LEUKOCYTOSIS [None]
  - GASTROINTESTINAL NECROSIS [None]
  - EJECTION FRACTION DECREASED [None]
  - ABDOMINAL PAIN [None]
  - HEPATIC FAILURE [None]
  - DISSEMINATED INTRAVASCULAR COAGULATION [None]
